FAERS Safety Report 4868633-6 (Version None)
Quarter: 2005Q4

REPORT INFORMATION
  Report Type: 
  Country: None (occurrence: None)
  Receive Date: 20051223
  Receipt Date: 20051212
  Transmission Date: 20060501
  Serious: Yes (Other)
  Sender: FDA-Public Use
  Company Number: 2005168318

PATIENT
  Age: 28 Year
  Sex: Female

DRUGS (2)
  1. ELETRIPTAN (ELETRIPTAN) [Suspect]
     Indication: MIGRAINE
  2. TOPIRAMATE [Suspect]
     Indication: MIGRAINE PROPHYLAXIS

REACTIONS (3)
  - HOMICIDAL IDEATION [None]
  - NIGHTMARE [None]
  - SUICIDAL IDEATION [None]
